FAERS Safety Report 22366999 (Version 5)
Quarter: 2023Q4

REPORT INFORMATION
  Report Type: Report from Study
  Country: FR (occurrence: FR)
  Receive Date: 20230525
  Receipt Date: 20231013
  Transmission Date: 20240110
  Serious: Yes (Life-Threatening)
  Sender: FDA-Public Use
  Company Number: FR-SA-SAC20230524001261

PATIENT
  Age: 79 Year
  Sex: Male
  Weight: 77 kg

DRUGS (29)
  1. ISATUXIMAB [Suspect]
     Active Substance: ISATUXIMAB
     Indication: Plasma cell myeloma
     Dosage: 750 MG, QD
     Route: 042
     Dates: start: 20220623, end: 20220623
  2. ISATUXIMAB [Suspect]
     Active Substance: ISATUXIMAB
     Dosage: 780 MG, QD
     Route: 042
     Dates: start: 20230502, end: 20230502
  3. ISATUXIMAB [Suspect]
     Active Substance: ISATUXIMAB
     Dosage: 840 MG, QD
     Route: 042
     Dates: start: 20230513, end: 20230513
  4. ISATUXIMAB [Suspect]
     Active Substance: ISATUXIMAB
     Dosage: 750 MG, QD
     Route: 042
     Dates: start: 20220701, end: 20220701
  5. ISATUXIMAB [Suspect]
     Active Substance: ISATUXIMAB
     Dosage: 750 MG, QD
     Route: 042
     Dates: start: 20230213, end: 20230213
  6. LENALIDOMIDE [Suspect]
     Active Substance: LENALIDOMIDE
     Indication: Plasma cell myeloma
     Dosage: 25 MG, QD
     Route: 042
     Dates: start: 20220623, end: 20220623
  7. LENALIDOMIDE [Suspect]
     Active Substance: LENALIDOMIDE
     Dosage: 25 MG, QD
     Route: 042
     Dates: start: 20220707, end: 20220707
  8. LENALIDOMIDE [Suspect]
     Active Substance: LENALIDOMIDE
     Dosage: 10 MG, QD
     Route: 042
     Dates: start: 20230526, end: 20230526
  9. LENALIDOMIDE [Suspect]
     Active Substance: LENALIDOMIDE
     Dosage: 25 MG, QD
     Route: 042
     Dates: start: 20230226, end: 20230226
  10. DEXAMETHASONE [Concomitant]
     Active Substance: DEXAMETHASONE
     Indication: Plasma cell myeloma
     Dosage: 20 MG, QD
     Dates: start: 20220623, end: 20220623
  11. DEXAMETHASONE [Concomitant]
     Active Substance: DEXAMETHASONE
     Dosage: 10 MG, QD
     Dates: start: 20230502, end: 20230502
  12. DEXAMETHASONE [Concomitant]
     Active Substance: DEXAMETHASONE
     Dosage: 10 MG, QD
     Dates: start: 20230513, end: 20230513
  13. EZETIMIBE [Concomitant]
     Active Substance: EZETIMIBE
     Dosage: UNK
  14. CRESTOR [Concomitant]
     Active Substance: ROSUVASTATIN CALCIUM
     Dosage: UNK
  15. AMLODIPINE BESYLATE [Concomitant]
     Active Substance: AMLODIPINE BESYLATE
  16. LASIX [Concomitant]
     Active Substance: FUROSEMIDE
  17. KERLONE [Concomitant]
     Active Substance: BETAXOLOL HYDROCHLORIDE
  18. HYDROCHLOROTHIAZIDE\RAMIPRIL [Concomitant]
     Active Substance: HYDROCHLOROTHIAZIDE\RAMIPRIL
  19. KARDEGIC [Concomitant]
     Active Substance: ASPIRIN DL-LYSINE
     Dosage: UNK
  20. FLUINDIONE [Concomitant]
     Active Substance: FLUINDIONE
  21. SERETIDE [Concomitant]
     Active Substance: FLUTICASONE PROPIONATE\SALMETEROL XINAFOATE
  22. ALBUTEROL SULFATE [Concomitant]
     Active Substance: ALBUTEROL SULFATE
     Dosage: UNK
  23. ALLOPURINOL [Concomitant]
     Active Substance: ALLOPURINOL
     Dosage: UNK
  24. BACTRIM [Concomitant]
     Active Substance: SULFAMETHOXAZOLE\TRIMETHOPRIM
     Indication: Prophylaxis
  25. VALACYCLOVIR HYDROCHLORIDE [Concomitant]
     Active Substance: VALACYCLOVIR HYDROCHLORIDE
     Indication: Prophylaxis
  26. LEUCOVORIN CALCIUM [Concomitant]
     Active Substance: LEUCOVORIN CALCIUM
     Indication: Prophylaxis
  27. ARANESP [Concomitant]
     Active Substance: DARBEPOETIN ALFA
     Indication: Prophylaxis
  28. ESOMEPRAZOLE [Concomitant]
     Active Substance: ESOMEPRAZOLE
     Indication: Gastrooesophageal reflux disease
  29. FILGRASTIM [Concomitant]
     Active Substance: FILGRASTIM
     Indication: Neutropenia
     Dosage: UNK
     Dates: start: 202303

REACTIONS (3)
  - Neutropenia [Recovered/Resolved]
  - Lymphopenia [Recovered/Resolved]
  - Lymphopenia [Recovered/Resolved]

NARRATIVE: CASE EVENT DATE: 20220713
